FAERS Safety Report 7619184-7 (Version None)
Quarter: 2011Q3

REPORT INFORMATION
  Report Type: 
  Country: None (occurrence: None)
  Receive Date: 20110718
  Receipt Date: 20110706
  Transmission Date: 20111222
  Serious: Yes (Hospitalization, Other)
  Sender: FDA-Public Use
  Company Number: PHEH2006US10891

PATIENT
  Sex: Female
  Weight: 88 kg

DRUGS (25)
  1. NEXIUM [Concomitant]
  2. RADIATION [Concomitant]
     Dates: start: 20010101
  3. ZOMETA [Suspect]
     Indication: METASTASES TO BONE
     Dosage: 4 MG, UNK
     Route: 042
     Dates: start: 20020423, end: 20050128
  4. OXYCONTIN [Concomitant]
  5. GEMZAR [Concomitant]
  6. PERIDEX [Concomitant]
  7. ADVAIR DISKUS 100/50 [Concomitant]
  8. COMBIVENT [Concomitant]
  9. XELODA [Concomitant]
  10. ACTIVASE [Concomitant]
  11. AREDIA [Suspect]
     Indication: METASTASES TO BONE
     Dosage: 90 MG, UNK
     Route: 042
     Dates: start: 20010401, end: 20011101
  12. CHEMOTHERAPEUTICS NOS [Concomitant]
  13. VIOXX [Concomitant]
     Dosage: 50 MG, UNK
  14. MEGACE [Concomitant]
  15. LORAZEPAM [Concomitant]
  16. PERCOCET [Concomitant]
  17. CLINDAMYCIN [Concomitant]
  18. FLONASE [Concomitant]
  19. COUMADIN [Concomitant]
  20. VALTREX [Concomitant]
  21. CELEBREX [Concomitant]
  22. FEMARA [Concomitant]
     Dosage: 2.5 MG, UNK
     Dates: start: 20000101, end: 20060401
  23. EFFEXOR [Concomitant]
     Dosage: 25 MG, UNK
  24. KADIAN ^KNOLL^ [Concomitant]
  25. HEPARIN [Concomitant]

REACTIONS (41)
  - METASTASES TO LIVER [None]
  - OSTEOMYELITIS [None]
  - OSTEONECROSIS OF JAW [None]
  - PAIN [None]
  - WOUND DEHISCENCE [None]
  - NUTRITIONAL CONDITION ABNORMAL [None]
  - FISTULA DISCHARGE [None]
  - JAW FRACTURE [None]
  - BONE EROSION [None]
  - SKIN LESION [None]
  - THROMBOCYTOPENIA [None]
  - FAILURE TO THRIVE [None]
  - BREAST CANCER RECURRENT [None]
  - MASTICATION DISORDER [None]
  - ACUTE SINUSITIS [None]
  - SERUM FERRITIN INCREASED [None]
  - PAIN IN EXTREMITY [None]
  - NEOPLASM PROGRESSION [None]
  - NEOPLASM MALIGNANT [None]
  - DEFORMITY [None]
  - PNEUMONIA [None]
  - ANXIETY [None]
  - IMPAIRED HEALING [None]
  - JOINT STIFFNESS [None]
  - OSTEOARTHRITIS [None]
  - TOOTH LOSS [None]
  - BONE DISORDER [None]
  - TOOTH FRACTURE [None]
  - OSTEODYSTROPHY [None]
  - GENERAL PHYSICAL HEALTH DETERIORATION [None]
  - TOOTH DISORDER [None]
  - PAIN IN JAW [None]
  - METASTASES TO MOUTH [None]
  - PATHOLOGICAL FRACTURE [None]
  - CARDIAC FAILURE CONGESTIVE [None]
  - OEDEMA PERIPHERAL [None]
  - HOT FLUSH [None]
  - DECREASED INTEREST [None]
  - PRIMARY SEQUESTRUM [None]
  - NEURITIS [None]
  - DYSPHAGIA [None]
